FAERS Safety Report 4613542-0 (Version None)
Quarter: 2005Q1

REPORT INFORMATION
  Report Type: 
  Country: None (occurrence: None)
  Receive Date: 20050321
  Receipt Date: 20050308
  Transmission Date: 20050727
  Serious: Yes (Hospitalization)
  Sender: FDA-Public Use
  Company Number: GXKR2005GB00723

PATIENT
  Age: 63 Year
  Sex: Female

DRUGS (8)
  1. CLARITHROMYCIN (NGX) [Suspect]
     Indication: LOWER RESPIRATORY TRACT INFECTION
     Dosage: 500 MG, BID
     Route: 048
  2. DICLOFENAC [Suspect]
     Dosage: 50 MG, TID
     Route: 048
  3. WARFARIN [Suspect]
     Indication: MITRAL VALVE REPLACEMENT
     Route: 048
  4. AMIODARONE [Concomitant]
     Dosage: 200 MG, QD
     Route: 048
  5. RAMIPRIL [Concomitant]
     Dosage: 10 MG, QD
     Route: 048
  6. FRUSEMIDE [Concomitant]
     Dosage: 60 MG, QD
     Route: 048
  7. LANSOPRAZOLE [Concomitant]
     Dosage: 30 MG, QD
     Route: 048
  8. SPIRONOLACTONE [Concomitant]
     Dosage: 2.5 MG, QD
     Route: 048

REACTIONS (3)
  - INTERNATIONAL NORMALISED RATIO INCREASED [None]
  - MELAENA [None]
  - RECTAL HAEMORRHAGE [None]
